FAERS Safety Report 13738637 (Version 1)
Quarter: 2017Q3

REPORT INFORMATION
  Report Type: Report from Study
  Country: US (occurrence: US)
  Receive Date: 20170710
  Receipt Date: 20170710
  Transmission Date: 20171127
  Serious: Yes (Other)
  Sender: FDA-Public Use
  Company Number: US-SAOL THERAPEUTICS-2017SAO00127

PATIENT
  Age: 49 Year
  Sex: Female

DRUGS (10)
  1. COMPOUNDED BACLOFEN [Suspect]
     Active Substance: BACLOFEN
     Dosage: 14.02 ?G, \DAY
     Route: 037
     Dates: start: 20130207
  2. FENTANYL. [Suspect]
     Active Substance: FENTANYL
     Dosage: 300.2 ?G, \DAY
     Route: 037
     Dates: start: 20130130, end: 20130207
  3. FENTANYL. [Suspect]
     Active Substance: FENTANYL
     Dosage: 450.2 ?G, \DAY
     Route: 037
     Dates: start: 20130304
  4. PRIALT [Suspect]
     Active Substance: ZICONOTIDE ACETATE
     Dosage: 0.9998 ?G, \DAY
     Route: 037
     Dates: start: 20130222, end: 20130304
  5. PRIALT [Suspect]
     Active Substance: ZICONOTIDE ACETATE
     Dosage: 1.1256 ?G, \DAY
     Route: 037
     Dates: start: 20130304, end: 20130326
  6. PRIALT [Suspect]
     Active Substance: ZICONOTIDE ACETATE
     Dosage: 0.1001 ?G, \DAY
     Route: 037
     Dates: start: 20130130, end: 20130207
  7. COMPOUNDED BACLOFEN [Suspect]
     Active Substance: BACLOFEN
     Dosage: 12.01 ?G, \DAY
     Route: 037
     Dates: start: 20130130, end: 20130207
  8. FENTANYL. [Suspect]
     Active Substance: FENTANYL
     Dosage: 350.4 ?G, \DAY
     Route: 037
     Dates: start: 20130207, end: 20130222
  9. FENTANYL. [Suspect]
     Active Substance: FENTANYL
     Dosage: 399.9 ?G, \DAY
     Route: 037
     Dates: start: 20130222, end: 20130304
  10. PRIALT [Suspect]
     Active Substance: ZICONOTIDE ACETATE
     Dosage: 0.1168 ?G, \DAY
     Route: 037
     Dates: start: 20130207, end: 20130222

REACTIONS (5)
  - Implant site extravasation [Recovered/Resolved]
  - Unevaluable event [Unknown]
  - Cerebrospinal fluid leakage [Recovered/Resolved]
  - Headache [Recovered/Resolved]
  - Memory impairment [Recovered/Resolved]

NARRATIVE: CASE EVENT DATE: 20130207
